FAERS Safety Report 9408446 (Version 2)
Quarter: 2013Q3

REPORT INFORMATION
  Report Type: Spontaneous
  Country: US (occurrence: US)
  Receive Date: 20130718
  Receipt Date: 20130830
  Transmission Date: 20140515
  Serious: No
  Sender: FDA-Public Use
  Company Number: US-009507513-1307USA009387

PATIENT
  Sex: Female

DRUGS (2)
  1. NUVARING [Suspect]
     Route: 067
  2. NUVARING [Suspect]
     Dosage: UNK
     Route: 067

REACTIONS (5)
  - Device expulsion [Unknown]
  - Incorrect drug administration duration [Unknown]
  - Inappropriate schedule of drug administration [Unknown]
  - Incorrect drug administration duration [Unknown]
  - No adverse event [Unknown]
